FAERS Safety Report 9387413 (Version 3)
Quarter: 2014Q2

REPORT INFORMATION
  Report Type: Spontaneous
  Country: FR (occurrence: FR)
  Receive Date: 20130708
  Receipt Date: 20140613
  Transmission Date: 20141212
  Serious: Yes (Life-Threatening, Hospitalization, Other)
  Sender: FDA-Public Use
  Company Number: FR-009507513-1307FRA002946

PATIENT
  Age: 25 Year
  Sex: Female
  Weight: 69 kg

DRUGS (5)
  1. EMEND [Suspect]
     Indication: ANTIEMETIC SUPPORTIVE CARE
     Dosage: 80 MG, QD
     Route: 048
     Dates: start: 20130220, end: 20130222
  2. HOLOXAN [Suspect]
     Indication: SARCOMA
     Dosage: 2 G, QD
     Route: 042
     Dates: start: 20130220, end: 20130222
  3. DOXORUBICIN [Suspect]
     Indication: SARCOMA
     Dosage: UNK
     Dates: start: 20130220, end: 20130222
  4. DOXORUBICIN [Suspect]
     Dosage: UNK
     Dates: start: 20130313
  5. UROMITEXAN [Suspect]
     Indication: SARCOMA

REACTIONS (1)
  - Encephalopathy [Recovered/Resolved]
